FAERS Safety Report 23342481 (Version 1)
Quarter: 2023Q4

REPORT INFORMATION
  Report Type: Spontaneous
  Country: US (occurrence: US)
  Receive Date: 20231227
  Receipt Date: 20231227
  Transmission Date: 20240110
  Serious: Yes (Death, Hospitalization, Other)
  Sender: FDA-Public Use
  Company Number: US-AMGEN-USASP2023226477

PATIENT

DRUGS (6)
  1. CARFILZOMIB [Suspect]
     Active Substance: CARFILZOMIB
     Indication: Plasma cell myeloma
     Dosage: 56 MILLIGRAM/SQ. METER, D1, 8, 15;
     Route: 042
  2. SELINEXOR [Suspect]
     Active Substance: SELINEXOR
     Indication: Plasma cell myeloma
     Dosage: 80 MILLIGRAM, D1, 8, 15
     Route: 048
  3. SELINEXOR [Suspect]
     Active Substance: SELINEXOR
     Dosage: 60 MILLIGRAM, D1, 8, 15
     Route: 048
  4. DEXAMETHASONE [Suspect]
     Active Substance: DEXAMETHASONE
     Indication: Plasma cell myeloma
     Dosage: UNK, D1, 8, 15, 22
     Route: 065
  5. POMALIDOMIDE [Suspect]
     Active Substance: POMALIDOMIDE
     Indication: Plasma cell myeloma
     Dosage: 4 MILLIGRAM, D1-21
     Route: 048
  6. DARATUMUMAB [Suspect]
     Active Substance: DARATUMUMAB
     Indication: Plasma cell myeloma
     Dosage: UNK, 16 MG/KG IVOR 1,800 MGSQON DL, 8, 15, 22 FORCL-2; DL AND 15 FORC3-6; D1
     Route: 065

REACTIONS (10)
  - Plasma cell myeloma [Unknown]
  - Asthenia [Fatal]
  - Neutropenia [Unknown]
  - Hypophosphataemia [Unknown]
  - Pneumonia [Unknown]
  - Hyperglycaemia [Unknown]
  - Fatigue [Unknown]
  - Diarrhoea [Fatal]
  - Fall [Unknown]
  - Pneumonia respiratory syncytial viral [Unknown]
